FAERS Safety Report 6332900-X (Version None)
Quarter: 2009Q3

REPORT INFORMATION
  Report Type: 
  Country: None (occurrence: None)
  Receive Date: 20090828
  Receipt Date: 20090826
  Transmission Date: 20100115
  Serious: No
  Sender: FDA-Public Use
  Company Number: US-JNJFOC-20090808818

PATIENT
  Sex: Male
  Weight: 79.38 kg

DRUGS (8)
  1. DURAGESIC-100 [Suspect]
     Indication: PAIN
     Route: 062
  2. AMBIEN [Concomitant]
     Indication: SLEEP DISORDER
     Route: 048
  3. ZANAFLEX [Concomitant]
     Indication: MUSCLE DISORDER
     Route: 048
  4. ANDRODERM [Concomitant]
     Indication: ENDOCRINE DISORDER
     Route: 062
  5. LIDODERM [Concomitant]
     Indication: PAIN
     Route: 062
  6. HYDROCHLOROTHIAZIDE [Concomitant]
     Indication: HYPERTENSION
     Route: 048
  7. LISINOPRIL [Concomitant]
     Indication: HYPERTENSION
     Dosage: 50 MG 2 TABLETS
     Route: 048
  8. DEXTROAMPHETAMINE [Concomitant]
     Indication: ATTENTION DEFICIT/HYPERACTIVITY DISORDER
     Route: 048

REACTIONS (2)
  - DRUG ADMINISTERED AT INAPPROPRIATE SITE [None]
  - INAPPROPRIATE SCHEDULE OF DRUG ADMINISTRATION [None]
